FAERS Safety Report 15428672 (Version 1)
Quarter: 2018Q3

REPORT INFORMATION
  Report Type: Spontaneous
  Country: US (occurrence: US)
  Receive Date: 20180919
  Receipt Date: 20180919
  Transmission Date: 20181010
  Serious: Yes (Other)
  Sender: FDA-Public Use
  Company Number: None

PATIENT
  Age: 38 Year
  Sex: Female
  Weight: 68.5 kg

DRUGS (1)
  1. BUPIVACAINE 0.75% IN 8.25% DEXTROSE [Suspect]
     Active Substance: BUPIVACAINE\DEXTROSE
     Indication: CAESAREAN SECTION
     Dosage: ONCE SPINAL   BUPIVACAINE 0.75 % IN 8.25% DEXTROSE
     Dates: start: 20180913

REACTIONS (4)
  - Maternal exposure during delivery [None]
  - Procedural pain [None]
  - Anaesthetic complication [None]
  - Caesarean section [None]

NARRATIVE: CASE EVENT DATE: 20180913
